FAERS Safety Report 25636234 (Version 1)
Quarter: 2025Q3

REPORT INFORMATION
  Report Type: Spontaneous
  Country: US (occurrence: US)
  Receive Date: 20250803
  Receipt Date: 20250803
  Transmission Date: 20251020
  Serious: Yes (Life-Threatening, Other)
  Sender: DR REDDYS
  Company Number: US-DRL-USA-USA/2025/07/011728

PATIENT
  Age: 41 Year
  Sex: Female

DRUGS (13)
  1. DOXORUBICIN [Suspect]
     Active Substance: DOXORUBICIN
     Indication: T-cell type acute leukaemia
  2. CYCLOPHOSPHAMIDE [Suspect]
     Active Substance: CYCLOPHOSPHAMIDE
     Indication: T-cell type acute leukaemia
  3. CYCLOPHOSPHAMIDE [Suspect]
     Active Substance: CYCLOPHOSPHAMIDE
  4. CYCLOPHOSPHAMIDE [Suspect]
     Active Substance: CYCLOPHOSPHAMIDE
  5. NELARABINE [Suspect]
     Active Substance: NELARABINE
     Indication: T-cell type acute leukaemia
     Route: 042
  6. NELARABINE [Suspect]
     Active Substance: NELARABINE
     Route: 042
  7. NELARABINE [Suspect]
     Active Substance: NELARABINE
     Route: 042
  8. DEXAMETHASONE [Suspect]
     Active Substance: DEXAMETHASONE
     Indication: T-cell type acute leukaemia
  9. VINCRISTINE [Suspect]
     Active Substance: VINCRISTINE
     Indication: T-cell type acute leukaemia
  10. PEG/L-ASPARAGINASE [Concomitant]
     Active Substance: PEGASPARGASE
     Indication: T-cell type acute leukaemia
  11. METHOTREXATE [Concomitant]
     Active Substance: METHOTREXATE
     Indication: T-cell type acute leukaemia
     Route: 037
  12. CYTARABINE [Concomitant]
     Active Substance: CYTARABINE
     Indication: T-cell type acute leukaemia
  13. VENETOCLAX [Concomitant]
     Active Substance: VENETOCLAX
     Indication: T-cell type acute leukaemia

REACTIONS (4)
  - Rhabdomyolysis [Recovered/Resolved]
  - Acute kidney injury [Unknown]
  - Drug ineffective [Unknown]
  - Product use in unapproved indication [Unknown]
